FAERS Safety Report 24986876 (Version 1)
Quarter: 2025Q1

REPORT INFORMATION
  Report Type: Spontaneous
  Country: CA (occurrence: US)
  Receive Date: 20250219
  Receipt Date: 20250219
  Transmission Date: 20250409
  Serious: Yes (Death, Hospitalization, Other)
  Sender: SANDOZ
  Company Number: CA-SANDOZ-SDZ2025US010383

PATIENT
  Age: 79 Year
  Sex: Male
  Weight: 37.19 kg

DRUGS (17)
  1. CARBOPLATIN [Suspect]
     Active Substance: CARBOPLATIN
     Indication: Non-small cell lung cancer stage III
     Dosage: 290 AUC-6, Q3WEEKS
     Route: 042
     Dates: start: 20250108, end: 20250108
  2. CARBOPLATIN [Suspect]
     Active Substance: CARBOPLATIN
     Dosage: 290 AUC-6, Q3WEEKS
     Route: 042
     Dates: start: 20250130, end: 20250130
  3. ORDASTOBART [Suspect]
     Active Substance: ORDASTOBART
     Indication: Non-small cell lung cancer stage III
     Dosage: 3.6 MG, Q3WEEKS
     Route: 042
     Dates: start: 20250108, end: 20250108
  4. ORDASTOBART [Suspect]
     Active Substance: ORDASTOBART
     Dosage: 3.6 MG, Q3WEEKS
     Route: 042
     Dates: start: 20250130, end: 20250130
  5. PACLITAXEL [Suspect]
     Active Substance: PACLITAXEL
     Dosage: 200 MG/M2, Q3WEEKS
     Route: 042
     Dates: start: 20250130, end: 20250130
  6. PACLITAXEL [Suspect]
     Active Substance: PACLITAXEL
     Indication: Non-small cell lung cancer stage III
     Dosage: 210 MG/M2, Q3WEEKS
     Route: 042
     Dates: start: 20250108, end: 20250108
  7. PEMBROLIZUMAB [Suspect]
     Active Substance: PEMBROLIZUMAB
     Indication: Non-small cell lung cancer stage III
     Dosage: 200 MG, Q3WEEKS
     Route: 042
     Dates: start: 20250108, end: 20250108
  8. PEMBROLIZUMAB [Suspect]
     Active Substance: PEMBROLIZUMAB
     Dosage: 200 MG, Q3WEEKS
     Route: 042
     Dates: start: 20250130, end: 20250130
  9. BENADRYL [Concomitant]
     Active Substance: DIPHENHYDRAMINE HYDROCHLORIDE
     Indication: Product used for unknown indication
     Route: 065
     Dates: start: 20240904
  10. CLOBETASOL PROPIONATE [Concomitant]
     Active Substance: CLOBETASOL PROPIONATE
     Indication: Product used for unknown indication
     Route: 065
  11. COLACE [Concomitant]
     Active Substance: DOCUSATE SODIUM
     Indication: Product used for unknown indication
     Route: 065
     Dates: start: 20241210
  12. DEXAMETHASONE [Concomitant]
     Active Substance: DEXAMETHASONE
     Indication: Product used for unknown indication
     Route: 065
     Dates: start: 20241210
  13. HYDROCODONE BITARTRATE AND ACETAMINOPHEN [Concomitant]
     Active Substance: ACETAMINOPHEN\HYDROCODONE BITARTRATE
     Indication: Product used for unknown indication
     Route: 065
     Dates: start: 20241204
  14. MILK OF MAGNESIA [Concomitant]
     Active Substance: MAGNESIUM HYDROXIDE
     Indication: Product used for unknown indication
     Route: 065
     Dates: start: 20241210
  15. MORPHINE [Concomitant]
     Active Substance: MORPHINE
     Indication: Product used for unknown indication
     Route: 065
     Dates: start: 202412
  16. SODIUM CHLORIDE [Concomitant]
     Active Substance: SODIUM CHLORIDE
     Indication: Product used for unknown indication
     Route: 065
     Dates: start: 20240829
  17. PROCRIT [Concomitant]
     Active Substance: ERYTHROPOIETIN
     Indication: Product used for unknown indication
     Route: 065
     Dates: start: 20241119

REACTIONS (1)
  - Respiratory failure [Fatal]

NARRATIVE: CASE EVENT DATE: 20250211
